FAERS Safety Report 9815539 (Version 2)
Quarter: 2014Q1

REPORT INFORMATION
  Report Type: Spontaneous
  Country: FR (occurrence: None)
  Receive Date: 20140110
  Receipt Date: 20140123
  Transmission Date: 20141002
  Serious: Yes (Death, Other)
  Sender: FDA-Public Use
  Company Number: AUR-APL-2014-00261

PATIENT
  Age: 86 Year
  Sex: Female

DRUGS (10)
  1. LEVOFLOXACIN [Suspect]
     Indication: PRODUCT USED FOR UNKNOWN INDICATION
     Dosage: (500  MG, 1 D), ORAL
     Route: 048
     Dates: start: 20131121, end: 20131130
  2. CORDARONE [Suspect]
     Indication: PRODUCT USED FOR UNKNOWN INDICATION
     Dosage: (200 MG, 1 D), UNKNOWN
     Dates: start: 20131128
  3. KARDEGIC [Suspect]
     Indication: MYOCARDIAL ISCHAEMIA
     Dosage: (160 MG, 1 D), ORAL
     Route: 048
     Dates: start: 201311, end: 20131130
  4. COUMADINE [Suspect]
     Indication: ATRIAL FIBRILLATION
     Route: 048
     Dates: start: 20131128, end: 20131205
  5. CALCIPARINE (HEPARIN CALCIUM) [Concomitant]
  6. LASILIX (FUROSEMIDE) [Concomitant]
  7. BISOPROLOL (BISOPROLOL) [Concomitant]
  8. EUPANTOL (PANTOPRAZOLE SODIUM SESQUIHYDRATE) [Concomitant]
  9. DIFFU K (POTASSIUM CHLORIDE) [Concomitant]
  10. OMEPRAZOLE (OMEPRAZOLE) [Concomitant]

REACTIONS (5)
  - Gastrointestinal haemorrhage [None]
  - International normalised ratio increased [None]
  - Rectal haemorrhage [None]
  - Proctitis [None]
  - Asthenia [None]
